FAERS Safety Report 12100145 (Version 1)
Quarter: 2016Q1

REPORT INFORMATION
  Report Type: Spontaneous
  Country: GB (occurrence: GB)
  Receive Date: 20160222
  Receipt Date: 20160222
  Transmission Date: 20160526
  Serious: Yes (Life-Threatening)
  Sender: FDA-Public Use
  Company Number: GB-TEVA-635333ACC

PATIENT
  Age: 80 Year
  Sex: Male
  Weight: 81.5 kg

DRUGS (11)
  1. GLYCERYL TRINITRATE [Concomitant]
     Active Substance: NITROGLYCERIN
  2. IMDUR [Concomitant]
     Active Substance: ISOSORBIDE MONONITRATE
  3. RAMIPRIL. [Concomitant]
     Active Substance: RAMIPRIL
  4. BETAHISTINE [Concomitant]
     Active Substance: BETAHISTINE
  5. AMIODARONE [Suspect]
     Active Substance: AMIODARONE
     Indication: VENTRICULAR TACHYCARDIA
     Dosage: 200 MILLIGRAM DAILY;
     Route: 048
     Dates: start: 20000202, end: 20150912
  6. CLONAZEPAM. [Concomitant]
     Active Substance: CLONAZEPAM
  7. LEVOTHYROXINE. [Concomitant]
     Active Substance: LEVOTHYROXINE
  8. CLOPIDOGREL [Concomitant]
     Active Substance: CLOPIDOGREL BISULFATE
  9. FELODIPINE. [Concomitant]
     Active Substance: FELODIPINE
  10. IBUPROFEN. [Concomitant]
     Active Substance: IBUPROFEN
  11. PARACETAMOL [Concomitant]
     Active Substance: ACETAMINOPHEN

REACTIONS (1)
  - Nodal arrhythmia [Recovered/Resolved]

NARRATIVE: CASE EVENT DATE: 20150812
